FAERS Safety Report 9190365 (Version 1)
Quarter: 2013Q1

REPORT INFORMATION
  Report Type: Spontaneous
  Country: US (occurrence: None)
  Receive Date: 20130322
  Receipt Date: 20130322
  Transmission Date: 20140127
  Serious: Yes (Death)
  Sender: FDA-Public Use
  Company Number: PIR#CC400173730

PATIENT
  Age: 30 Year
  Sex: Male

DRUGS (6)
  1. 5% DEXTROSE INJECTION (B. BRAUN MEDICAL INC.) [Suspect]
     Indication: THYROTOXIC PERIODIC PARALYSIS
     Route: 042
  2. 10% KCL [Concomitant]
  3. VITAMIN C [Concomitant]
  4. VITAMIN B6 [Concomitant]
  5. ATP [Concomitant]
  6. COBALAMIN [Concomitant]

REACTIONS (7)
  - No therapeutic response [None]
  - Breath sounds abnormal [None]
  - Cardiac arrest [None]
  - Eye movement disorder [None]
  - Convulsion [None]
  - Cyanosis [None]
  - Blood potassium decreased [None]
